FAERS Safety Report 9029970 (Version 1)
Quarter: 2013Q1

REPORT INFORMATION
  Report Type: Spontaneous
  Country: US (occurrence: US)
  Receive Date: 20130125
  Receipt Date: 20130125
  Transmission Date: 20140127
  Serious: Yes (Hospitalization)
  Sender: FDA-Public Use
  Company Number: US-BIOGENIDEC-2013BI006202

PATIENT
  Age: 29 Year
  Sex: Female

DRUGS (1)
  1. AVONEX [Suspect]
     Indication: MULTIPLE SCLEROSIS
     Route: 030
     Dates: end: 20060913

REACTIONS (6)
  - Abasia [Not Recovered/Not Resolved]
  - Optic neuritis [Not Recovered/Not Resolved]
  - Fall [Recovered/Resolved]
  - Ligament sprain [Unknown]
  - Influenza like illness [Unknown]
  - Pain [Not Recovered/Not Resolved]
